FAERS Safety Report 5084990-2 (Version None)
Quarter: 2006Q3

REPORT INFORMATION
  Report Type: 
  Country: None (occurrence: None)
  Receive Date: 20060821
  Receipt Date: 19920715
  Transmission Date: 20061208
  Serious: Yes (Death)
  Sender: FDA-Public Use
  Company Number: CA-MERCK-0608USA04511

PATIENT

DRUGS (2)
  1. INDOCIN [Suspect]
     Indication: TOCOLYSIS
  2. INDOCIN [Suspect]

REACTIONS (4)
  - CONGENITAL ANOMALY [None]
  - DEATH [None]
  - DRUG EXPOSURE DURING PREGNANCY [None]
  - LISTERIOSIS [None]
